FAERS Safety Report 18015920 (Version 1)
Quarter: 2020Q3

REPORT INFORMATION
  Report Type: Spontaneous
  Country: US (occurrence: US)
  Receive Date: 20200713
  Receipt Date: 20200713
  Transmission Date: 20201103
  Serious: Yes (Hospitalization)
  Sender: FDA-Public Use
  Company Number: US-OTSUKA-2020_016353

PATIENT
  Age: 54 Year
  Sex: Female

DRUGS (3)
  1. SAMSCA [Suspect]
     Active Substance: TOLVAPTAN
     Dosage: 30 MG, UNK
     Route: 065
  2. SAMSCA [Suspect]
     Active Substance: TOLVAPTAN
     Indication: HYPONATRAEMIA
     Dosage: UNK
     Route: 065
  3. SAMSCA [Suspect]
     Active Substance: TOLVAPTAN
     Dosage: 15 MG, UNK
     Route: 065
     Dates: start: 20200705

REACTIONS (4)
  - COVID-19 [Unknown]
  - Blood sodium decreased [Recovering/Resolving]
  - Insurance issue [Unknown]
  - Therapy interrupted [Unknown]
